FAERS Safety Report 9011821 (Version 1)
Quarter: 2012Q4

REPORT INFORMATION
  Report Type: Spontaneous
  Country: US (occurrence: None)
  Receive Date: 20121228
  Receipt Date: 20121228
  Transmission Date: 20130627
  Serious: Yes (Other)
  Sender: FDA-Public Use
  Company Number: 20120765

PATIENT
  Age: 61 Year
  Sex: Female

DRUGS (1)
  1. MORRHUATE SODIUM [Suspect]
     Indication: SCLEROTHERAPY

REACTIONS (2)
  - Duodenal perforation [None]
  - Post procedural complication [None]
